FAERS Safety Report 15186457 (Version 1)
Quarter: 2018Q3

REPORT INFORMATION
  Report Type: Report from Study
  Country: US (occurrence: US)
  Receive Date: 20180723
  Receipt Date: 20180723
  Transmission Date: 20181010
  Serious: Yes (Hospitalization, Other)
  Sender: FDA-Public Use
  Company Number: US-EXELIXIS-CABO-17011415

PATIENT
  Sex: Male

DRUGS (18)
  1. CITALOPRAM [Concomitant]
     Active Substance: CITALOPRAM HYDROBROMIDE
  2. HEPARIN LOCK FLUSH [Concomitant]
     Active Substance: HEPARIN SODIUM
  3. NOVOLOG [Concomitant]
     Active Substance: INSULIN ASPART
  4. TPA [Suspect]
     Active Substance: ALTEPLASE
  5. CABOMETYX [Suspect]
     Active Substance: CABOZANTINIB S-MALATE
     Indication: RENAL CANCER
     Dosage: 60 MG, QD
     Route: 048
     Dates: start: 20170922, end: 20180516
  6. DILAUDID [Concomitant]
     Active Substance: HYDROMORPHONE HYDROCHLORIDE
  7. FENOFIBRATE. [Concomitant]
     Active Substance: FENOFIBRATE
  8. METFORMIN [Concomitant]
     Active Substance: METFORMIN HYDROCHLORIDE
  9. COZAAR [Concomitant]
     Active Substance: LOSARTAN POTASSIUM
  10. LACTULOSE. [Concomitant]
     Active Substance: LACTULOSE
  11. TOUJEO [Concomitant]
     Active Substance: INSULIN GLARGINE
  12. XARELTO [Concomitant]
     Active Substance: RIVAROXABAN
  13. ESCITALOPRAM OXALATE. [Concomitant]
     Active Substance: ESCITALOPRAM OXALATE
  14. COQ10 [Concomitant]
     Active Substance: UBIDECARENONE
  15. PANTOPRAZOLE SODIUM. [Concomitant]
     Active Substance: PANTOPRAZOLE SODIUM
  16. VITAMIN B12 [Concomitant]
     Active Substance: CYANOCOBALAMIN
  17. CELECOXIB. [Concomitant]
     Active Substance: CELECOXIB
  18. PRAVASTATIN. [Concomitant]
     Active Substance: PRAVASTATIN

REACTIONS (7)
  - Pulmonary embolism [Unknown]
  - Faecaloma [Recovering/Resolving]
  - Thrombosis [Recovered/Resolved]
  - Post procedural haemorrhage [Unknown]
  - Bladder disorder [Unknown]
  - Abdominal discomfort [Unknown]
  - Fatigue [Unknown]
